FAERS Safety Report 8458496-4 (Version None)
Quarter: 2012Q2

REPORT INFORMATION
  Report Type: 
  Country: None (occurrence: None)
  Receive Date: 20120622
  Receipt Date: 20120614
  Transmission Date: 20120825
  Serious: Yes (Other)
  Sender: FDA-Public Use
  Company Number: GB-VERTEX PHARMACEUTICALS INC.-000000000000000948

PATIENT
  Sex: Male

DRUGS (1)
  1. INCIVO [Suspect]
     Indication: HEPATITIS C
     Dosage: DOSAGE FORM: TABLET
     Route: 048
     Dates: start: 20120528

REACTIONS (4)
  - PROCTALGIA [None]
  - DYSPNOEA [None]
  - PAIN [None]
  - PAIN IN EXTREMITY [None]
